FAERS Safety Report 5936698-6 (Version None)
Quarter: 2008Q4

REPORT INFORMATION
  Report Type: 
  Country: None (occurrence: None)
  Receive Date: 20081030
  Receipt Date: 20081023
  Transmission Date: 20090506
  Serious: Yes (Hospitalization)
  Sender: FDA-Public Use
  Company Number: SG-MERCK-0810USA04558

PATIENT
  Age: 58 Year
  Sex: Male

DRUGS (1)
  1. HYDRODIURIL [Suspect]
     Indication: HYPERTENSION
     Route: 048

REACTIONS (10)
  - ATAXIA [None]
  - BRADYKINESIA [None]
  - CONFUSIONAL STATE [None]
  - DEMYELINATION [None]
  - DEPRESSED LEVEL OF CONSCIOUSNESS [None]
  - GAIT DISTURBANCE [None]
  - HYPONATRAEMIA [None]
  - INAPPROPRIATE ANTIDIURETIC HORMONE SECRETION [None]
  - LETHARGY [None]
  - MUSCLE RIGIDITY [None]
